FAERS Safety Report 4666042-6 (Version None)
Quarter: 2005Q2

REPORT INFORMATION
  Report Type: 
  Country: None (occurrence: None)
  Receive Date: 20050519
  Receipt Date: 20030324
  Transmission Date: 20051028
  Serious: Yes (Disabling)
  Sender: FDA-Public Use
  Company Number: CH-ROCHE-334363

PATIENT
  Age: 46 Year
  Sex: Male

DRUGS (1)
  1. LARIAM [Suspect]
     Indication: MALARIA
     Route: 048
     Dates: start: 19980115, end: 19980615

REACTIONS (8)
  - APATHY [None]
  - ASTHENIA [None]
  - DIZZINESS [None]
  - DYSPNOEA [None]
  - FATIGUE [None]
  - HEADACHE [None]
  - MEMORY IMPAIRMENT [None]
  - TACHYCARDIA [None]
